FAERS Safety Report 8201820-8 (Version None)
Quarter: 2012Q1

REPORT INFORMATION
  Report Type: 
  Country: None (occurrence: None)
  Receive Date: 20120312
  Receipt Date: 20120308
  Transmission Date: 20120608
  Serious: Yes (Life-Threatening, Hospitalization, Other)
  Sender: FDA-Public Use
  Company Number: US-BAYER-201021603NA

PATIENT
  Age: 27 Year
  Sex: Female
  Weight: 125 kg

DRUGS (9)
  1. MOTRIN [Concomitant]
     Dosage: 800 MG, TID
  2. ZITHROMAX [Concomitant]
     Dosage: UNK
     Dates: start: 20080301
  3. YAZ [Suspect]
     Indication: MENSTRUATION IRREGULAR
     Dosage: AS USED DOSE: UNK
     Route: 048
     Dates: start: 20031204, end: 20080301
  4. YASMIN [Suspect]
     Indication: MENSTRUATION IRREGULAR
     Dosage: AS USED DOSE: UNK
     Route: 048
     Dates: start: 20031204, end: 20080301
  5. FLEXERIL [Concomitant]
     Dosage: 10 MG, UNK
     Dates: end: 20080301
  6. ZITHROMAX [Concomitant]
     Dosage: UNK
     Dates: start: 20080304
  7. YAZ [Suspect]
     Indication: CONTRACEPTION
  8. PROPOXYPHENE NAPSYLATE [Concomitant]
     Dosage: UNK
     Dates: start: 20080205
  9. NAPROXEN SODIUM [Concomitant]
     Dosage: UNK
     Dates: start: 20080109

REACTIONS (2)
  - DEEP VEIN THROMBOSIS [None]
  - PULMONARY EMBOLISM [None]
